FAERS Safety Report 16093753 (Version 1)
Quarter: 2019Q2

REPORT INFORMATION
  Report Type: Spontaneous
  Country: US (occurrence: US)
  Receive Date: 20190319
  Receipt Date: 20190319
  Transmission Date: 20190711
  Serious: No
  Sender: FDA-Public Use
  Company Number: None

PATIENT
  Age: 83 Year
  Sex: Female
  Weight: 70.2 kg

DRUGS (1)
  1. SUTENT [Suspect]
     Active Substance: SUNITINIB MALATE
     Indication: RENAL CANCER
     Route: 048
     Dates: start: 20190201

REACTIONS (5)
  - Gait disturbance [None]
  - Dyspnoea [None]
  - Candida infection [None]
  - Night sweats [None]
  - Urinary tract infection [None]

NARRATIVE: CASE EVENT DATE: 20190319
